FAERS Safety Report 9919877 (Version 1)
Quarter: 2014Q1

REPORT INFORMATION
  Report Type: Spontaneous
  Country: US (occurrence: US)
  Receive Date: 20140224
  Receipt Date: 20140224
  Transmission Date: 20141002
  Serious: No
  Sender: FDA-Public Use
  Company Number: US-009507513-1402USA008655

PATIENT
  Age: 71 Year
  Sex: Female
  Weight: 69.39 kg

DRUGS (6)
  1. OXYTROL FOR WOMEN [Suspect]
     Indication: POLLAKIURIA
     Dosage: UNK, UNKNOWN
     Route: 062
     Dates: start: 201301, end: 201401
  2. BENICAR [Concomitant]
     Indication: HYPERTENSION
     Dosage: 10 MG, QD
  3. EPIPEN [Concomitant]
     Indication: ANAPHYLACTIC REACTION
     Dosage: UNK, PRN
  4. TYLENOL WITH CODEINE #3 [Concomitant]
     Indication: INTERVERTEBRAL DISC DEGENERATION
     Dosage: UNK, PRN
  5. CHONDROITIN SULFATE SODIUM (+) GLUCOSAMINE SULFATE [Concomitant]
     Indication: ARTHRITIS
     Dosage: UNK, UNKNOWN
  6. RED YEAST [Concomitant]
     Indication: PRODUCT USED FOR UNKNOWN INDICATION
     Dosage: UNK, UNKNOWN

REACTIONS (2)
  - Drug ineffective [Unknown]
  - Product adhesion issue [Unknown]
